FAERS Safety Report 24125927 (Version 2)
Quarter: 2024Q3

REPORT INFORMATION
  Report Type: Report from Study
  Country: US (occurrence: US)
  Receive Date: 20240723
  Receipt Date: 20240814
  Transmission Date: 20241016
  Serious: Yes (Hospitalization)
  Sender: GILEAD
  Company Number: US-GILEAD-2024-0678306

PATIENT
  Age: 61 Year
  Sex: Female

DRUGS (4)
  1. AMBRISENTAN [Suspect]
     Active Substance: AMBRISENTAN
     Indication: Pulmonary arterial hypertension
     Dosage: 10 MG, QD
     Route: 065
     Dates: start: 20210302
  2. AMBRISENTAN [Suspect]
     Active Substance: AMBRISENTAN
     Dosage: 10 MG
     Route: 065
     Dates: start: 20101206
  3. TYVASO [Concomitant]
     Active Substance: TREPROSTINIL
  4. TADALAFIL [Concomitant]
     Active Substance: TADALAFIL

REACTIONS (5)
  - Weight decreased [Unknown]
  - Laboratory test abnormal [Unknown]
  - Thyroid disorder [Unknown]
  - Dyspnoea [Unknown]
  - Illness [Unknown]
